FAERS Safety Report 5793443-5 (Version None)
Quarter: 2008Q2

REPORT INFORMATION
  Report Type: 
  Country: None (occurrence: None)
  Receive Date: 20080627
  Receipt Date: 20080624
  Transmission Date: 20081010
  Serious: Yes (Death)
  Sender: FDA-Public Use
  Company Number: JP-JNJFOC-20080203079

PATIENT
  Sex: Female
  Weight: 38 kg

DRUGS (5)
  1. ITRIZOLE [Suspect]
     Indication: ORAL CANDIDIASIS
     Route: 048
  2. PREDNISOLONE [Concomitant]
     Route: 048
  3. PREDNISOLONE [Concomitant]
     Indication: HUMAN T-CELL LYMPHOTROPIC VIRUS TYPE I INFECTION
     Route: 048
  4. DEPAS [Concomitant]
     Indication: INSOMNIA
     Route: 048
  5. EURODIN [Concomitant]
     Indication: INSOMNIA
     Route: 048

REACTIONS (3)
  - ATYPICAL MYCOBACTERIAL INFECTION [None]
  - HUMAN T-CELL LYMPHOTROPIC VIRUS TYPE I INFECTION [None]
  - PANCYTOPENIA [None]
